FAERS Safety Report 5097925-3 (Version None)
Quarter: 2006Q3

REPORT INFORMATION
  Report Type: 
  Country: None (occurrence: None)
  Receive Date: 20060905
  Receipt Date: 20060905
  Transmission Date: 20061208
  Serious: Yes (Other)
  Sender: FDA-Public Use
  Company Number: None

PATIENT
  Age: 69 Year
  Sex: Female

DRUGS (1)
  1. SUCCINYLCHOLINE CHLORIDE [Suspect]
     Indication: PREOPERATIVE CARE
     Dosage: 20MG IV
     Route: 042
     Dates: start: 20060822, end: 20060822

REACTIONS (1)
  - THERAPY NON-RESPONDER [None]
